FAERS Safety Report 4877581-7 (Version None)
Quarter: 2006Q1

REPORT INFORMATION
  Report Type: 
  Country: None (occurrence: None)
  Receive Date: 20060111
  Receipt Date: 20050228
  Transmission Date: 20060701
  Serious: Yes (Other)
  Sender: FDA-Public Use
  Company Number: SE-GLAXOSMITHKLINE-B0405929A

PATIENT
  Age: 38 Year
  Sex: Female

DRUGS (2)
  1. SUMATRIPTAN SUCCINATE [Suspect]
     Indication: MIGRAINE
     Dosage: 100MG SEE DOSAGE TEXT
     Route: 048
  2. CODEINE [Concomitant]

REACTIONS (1)
  - ABORTION SPONTANEOUS [None]
